FAERS Safety Report 5052132-5 (Version None)
Quarter: 2006Q3

REPORT INFORMATION
  Report Type: 
  Country: None (occurrence: None)
  Receive Date: 20060712
  Receipt Date: 20060712
  Transmission Date: 20061208
  Serious: No
  Sender: FDA-Public Use
  Company Number: None

PATIENT
  Age: 44 Year
  Sex: Male

DRUGS (1)
  1. TIGECYCLINE 50MG [Suspect]
     Dosage: 50MG   Q12H   IV
     Route: 042
     Dates: start: 20060620, end: 20060628

REACTIONS (1)
  - NAUSEA [None]
